FAERS Safety Report 6287718-3 (Version None)
Quarter: 2009Q3

REPORT INFORMATION
  Report Type: 
  Country: None (occurrence: None)
  Receive Date: 20090727
  Receipt Date: 20090727
  Transmission Date: 20100115
  Serious: Yes (Other)
  Sender: FDA-Public Use
  Company Number: None

PATIENT
  Age: 45 Year
  Sex: Female
  Weight: 58.0604 kg

DRUGS (2)
  1. CIPROFLOXACIN [Suspect]
     Indication: CELLULITIS
     Dosage: 1 IV, IV DRIP
     Route: 041
     Dates: start: 20080516, end: 20080516
  2. CIPROFLOXACIN [Suspect]
     Dosage: 500 MG, 2 PER DAY, PO
     Route: 048
     Dates: start: 20080517, end: 20080522

REACTIONS (2)
  - HYPOAESTHESIA [None]
  - PARAESTHESIA [None]
